FAERS Safety Report 5236474-6 (Version None)
Quarter: 2007Q1

REPORT INFORMATION
  Report Type: 
  Country: None (occurrence: None)
  Receive Date: 20061208
  Receipt Date: 20060607
  Transmission Date: 20070707
  Serious: Yes (Other)
  Sender: FDA-Public Use
  Company Number: 2006UW12139

PATIENT
  Age: 56 Year
  Sex: Male
  Weight: 83.914 kg

DRUGS (1)
  1. CRESTOR [Suspect]
     Indication: BLOOD CHOLESTEROL INCREASED
     Dates: start: 20060501

REACTIONS (1)
  - URINE ODOUR ABNORMAL [None]
